APPROVED DRUG PRODUCT: RAZADYNE
Active Ingredient: GALANTAMINE HYDROBROMIDE
Strength: EQ 4MG BASE **Federal Register determination that product was not discontinued or withdrawn for safety or effectiveness reasons**
Dosage Form/Route: TABLET;ORAL
Application: N021169 | Product #001
Applicant: JANSSEN PHARMACEUTICALS INC
Approved: Feb 28, 2001 | RLD: Yes | RS: No | Type: DISCN